FAERS Safety Report 24003425 (Version 2)
Quarter: 2024Q2

REPORT INFORMATION
  Report Type: Spontaneous
  Country: US (occurrence: US)
  Receive Date: 20240624
  Receipt Date: 20240624
  Transmission Date: 20240715
  Serious: Yes (Hospitalization)
  Sender: FDA-Public Use
  Company Number: US-ROCHE-10000000111

PATIENT
  Age: 53 Year
  Sex: Male

DRUGS (9)
  1. XOLAIR [Suspect]
     Active Substance: OMALIZUMAB
     Indication: Asthma
     Route: 058
     Dates: start: 20240320
  2. XOLAIR [Suspect]
     Active Substance: OMALIZUMAB
  3. HYDROCODONE BITARTRATE AND ACETAMINOPHEN [Concomitant]
     Active Substance: ACETAMINOPHEN\HYDROCODONE BITARTRATE
  4. IBUPROFEN [Concomitant]
     Active Substance: IBUPROFEN
  5. TIZANIDINE [Concomitant]
     Active Substance: TIZANIDINE
  6. ALBUTEROL [Concomitant]
     Active Substance: ALBUTEROL
  7. ATORVASTATIN [Concomitant]
     Active Substance: ATORVASTATIN
  8. ALBUTEROL SULFATE [Concomitant]
     Active Substance: ALBUTEROL SULFATE
  9. GABAPENTIN [Concomitant]
     Active Substance: GABAPENTIN

REACTIONS (1)
  - Asthma [Unknown]

NARRATIVE: CASE EVENT DATE: 20240521
